FAERS Safety Report 24226308 (Version 3)
Quarter: 2024Q3

REPORT INFORMATION
  Report Type: Report from Study
  Country: US (occurrence: US)
  Receive Date: 20240820
  Receipt Date: 20240927
  Transmission Date: 20241016
  Serious: No
  Sender: ACADIA PHARMACEUTICALS
  Company Number: US-ACADIA PHARMACEUTICALS INC.-ACA-2024-TRF-004003

PATIENT
  Age: 11 Year
  Sex: Female
  Weight: 69.7 kg

DRUGS (10)
  1. DAYBUE [Suspect]
     Active Substance: TROFINETIDE
     Indication: Rett syndrome
     Dosage: 60 MILLILITER, BID
     Route: 048
     Dates: start: 20231116
  2. DAYBUE [Suspect]
     Active Substance: TROFINETIDE
     Dosage: 60 MILLILITER, BID
     Route: 048
  3. ABILIFY [Concomitant]
     Active Substance: ARIPIPRAZOLE
     Dosage: 15 MILLIGRAM, QD
     Route: 048
     Dates: start: 20240209, end: 20240521
  4. ABILIFY [Concomitant]
     Active Substance: ARIPIPRAZOLE
     Dosage: 15 MILLIGRAM, QD
     Route: 048
     Dates: start: 20240521, end: 20240718
  5. KLONOPIN [Concomitant]
     Active Substance: CLONAZEPAM
     Dosage: 0.5MG
     Route: 048
     Dates: start: 20240209, end: 20240521
  6. KLONOPIN [Concomitant]
     Active Substance: CLONAZEPAM
     Dosage: 0.25MG, 1 TABLET TO DISSOLVE IN MOUTH IN THE MORNING AND IN THE EVENING AS SCHEDULED. CAN GIVE 1 ADD
     Route: 048
     Dates: end: 20240521
  7. KLONOPIN [Concomitant]
     Active Substance: CLONAZEPAM
     Dosage: 0.5MG BID
     Route: 048
     Dates: start: 20240626
  8. ZOLOFT [Concomitant]
     Active Substance: SERTRALINE HYDROCHLORIDE
     Dosage: 50 MILLIGRAM, QD
     Route: 048
     Dates: start: 20240209, end: 20240515
  9. ZOLOFT [Concomitant]
     Active Substance: SERTRALINE HYDROCHLORIDE
     Dosage: 50 MILLIGRAM, QD
     Route: 048
     Dates: start: 20240515, end: 20240718
  10. VITAMIN D3 [Concomitant]
     Active Substance: CHOLECALCIFEROL
     Dosage: 25 MICROGRAM
     Route: 048

REACTIONS (6)
  - Dehydration [Not Recovered/Not Resolved]
  - Gastroenteritis viral [Not Recovered/Not Resolved]
  - SARS-CoV-2 test positive [Recovered/Resolved]
  - Intentional dose omission [Recovered/Resolved]
  - Diarrhoea [Recovered/Resolved]
  - Vomiting [Recovered/Resolved]

NARRATIVE: CASE EVENT DATE: 20231116
